FAERS Safety Report 9951509 (Version 1)
Quarter: 2014Q1

REPORT INFORMATION
  Report Type: Report from Study
  Country: US (occurrence: US)
  Receive Date: 20140304
  Receipt Date: 20140304
  Transmission Date: 20141002
  Serious: Yes (Other)
  Sender: FDA-Public Use
  Company Number: US-ABBVIE-13P-163-1075677-00

PATIENT
  Sex: Male
  Weight: 80.36 kg

DRUGS (4)
  1. HUMIRA [Suspect]
     Indication: UVEITIS
     Dates: start: 2010
  2. BETA BLOCKER [Concomitant]
     Indication: HYPERTENSION
  3. HCTZ [Concomitant]
     Indication: HYPERTENSION
  4. PREDNISONE [Concomitant]
     Indication: UVEITIS
     Dates: start: 2008

REACTIONS (3)
  - Prostate cancer [Not Recovered/Not Resolved]
  - Off label use [Unknown]
  - Uveitis [Unknown]
